FAERS Safety Report 22345631 (Version 1)
Quarter: 2023Q2

REPORT INFORMATION
  Report Type: Spontaneous
  Country: US (occurrence: US)
  Receive Date: 20230519
  Receipt Date: 20230519
  Transmission Date: 20230721
  Serious: Yes (Death, Other)
  Sender: FDA-Public Use
  Company Number: US-GILEAD-2023-0629095

PATIENT
  Age: 60 Year
  Sex: Female

DRUGS (1)
  1. REMDESIVIR [Suspect]
     Active Substance: REMDESIVIR
     Indication: COVID-19
     Dosage: 100 MG
     Route: 042
     Dates: start: 20200926, end: 20200930

REACTIONS (1)
  - Death [Fatal]

NARRATIVE: CASE EVENT DATE: 20201015
